FAERS Safety Report 6423769-3 (Version None)
Quarter: 2009Q4

REPORT INFORMATION
  Report Type: 
  Country: None (occurrence: None)
  Receive Date: 20091102
  Receipt Date: 20091021
  Transmission Date: 20100525
  Serious: Yes (Hospitalization)
  Sender: FDA-Public Use
  Company Number: JP-ASTRAZENECA-2009SE18886

PATIENT
  Age: 80 Year
  Sex: Female
  Weight: 50 kg

DRUGS (8)
  1. ARIMIDEX [Suspect]
     Indication: BREAST CANCER
     Route: 048
     Dates: start: 20070206
  2. ZOMETA [Suspect]
     Indication: METASTASES TO BONE
     Dosage: 4 MG EVERY 3-4 WEEKS
     Route: 041
     Dates: start: 20070206, end: 20090916
  3. AMLODIPINE OD [Concomitant]
     Indication: HYPERTENSION
     Route: 048
  4. METHYCOBAL [Concomitant]
     Indication: PERIPHERAL VASCULAR DISORDER
     Route: 048
  5. MILTAX [Concomitant]
     Indication: LUMBAR SPINAL STENOSIS
     Dosage: OPTIMUM DOSE
     Route: 062
     Dates: start: 20080909
  6. MUCOSTA [Concomitant]
     Indication: PROPHYLAXIS AGAINST GASTROINTESTINAL ULCER
     Route: 048
     Dates: start: 20080916
  7. LOXOPROFEN [Concomitant]
     Indication: BACK PAIN
     Route: 048
     Dates: start: 20080916, end: 20091001
  8. TSUMURA GOSHAJINKIGAN EXTRACT GRANULES [Concomitant]
     Indication: LUMBAR SPINAL STENOSIS
     Route: 048
     Dates: start: 20081002, end: 20091001

REACTIONS (1)
  - RENAL FAILURE ACUTE [None]
